FAERS Safety Report 8272464-7 (Version None)
Quarter: 2012Q2

REPORT INFORMATION
  Report Type: 
  Country: None (occurrence: None)
  Receive Date: 20120410
  Receipt Date: 20120321
  Transmission Date: 20120825
  Serious: No
  Sender: FDA-Public Use
  Company Number: US-ROXANE LABORATORIES, INC.-2012-RO-00984RO

PATIENT
  Sex: Female

DRUGS (2)
  1. MEGESTROL ACETATE [Suspect]
  2. ASPIRIN [Suspect]

REACTIONS (1)
  - BLOOD BLISTER [None]
